FAERS Safety Report 11428579 (Version 1)
Quarter: 2015Q3

REPORT INFORMATION
  Report Type: Spontaneous
  Country: US (occurrence: US)
  Receive Date: 20150828
  Receipt Date: 20150828
  Transmission Date: 20151125
  Serious: No
  Sender: FDA-Public Use
  Company Number: US-ROCHE-1188734

PATIENT
  Age: 57 Year
  Sex: Female
  Weight: 84.9 kg

DRUGS (5)
  1. PEGASYS [Suspect]
     Active Substance: PEGINTERFERON ALFA-2A
     Indication: CHRONIC HEPATITIS C
     Dosage: 180 MCG/0.5ML
     Route: 058
     Dates: start: 20130123
  2. RIBAVIRIN. [Suspect]
     Active Substance: RIBAVIRIN
     Indication: CHRONIC HEPATITIS C
     Dosage: IN DIVIDED DOSES
     Route: 048
     Dates: start: 20130123
  3. INCIVEK [Suspect]
     Active Substance: TELAPREVIR
     Indication: CHRONIC HEPATITIS C
     Dosage: 2 TABLETS THRICE DAILY
     Route: 065
     Dates: start: 20130123
  4. RIBAVIRIN. [Suspect]
     Active Substance: RIBAVIRIN
     Route: 048
     Dates: start: 20130129
  5. RIBAVIRIN. [Suspect]
     Active Substance: RIBAVIRIN
     Route: 048

REACTIONS (7)
  - Myalgia [Unknown]
  - Dry mouth [Unknown]
  - Fatigue [Unknown]
  - Chills [Unknown]
  - Arthralgia [Unknown]
  - Full blood count decreased [Unknown]
  - Rash [Recovering/Resolving]

NARRATIVE: CASE EVENT DATE: 20130128
